FAERS Safety Report 20581598 (Version 1)
Quarter: 2022Q1

REPORT INFORMATION
  Report Type: Spontaneous
  Country: CA (occurrence: CA)
  Receive Date: 20220311
  Receipt Date: 20220311
  Transmission Date: 20220423
  Serious: Yes (Death, Life-Threatening, Hospitalization, Other)
  Sender: FDA-Public Use
  Company Number: None

PATIENT
  Age: 17 Year
  Sex: Female
  Weight: 74 kg

DRUGS (58)
  1. GEMCITABINE [Suspect]
     Active Substance: GEMCITABINE
     Indication: Bone marrow conditioning regimen
     Route: 042
  2. ACETAMINOPHEN [Concomitant]
     Active Substance: ACETAMINOPHEN
  3. ACYCLOVIR [Concomitant]
     Active Substance: ACYCLOVIR
  4. ALLOPURINOL [Concomitant]
     Active Substance: ALLOPURINOL
  5. AMOXICILLIN [Concomitant]
     Active Substance: AMOXICILLIN
  6. ATROPINE [Concomitant]
     Active Substance: ATROPINE
  7. AZITHROMYCIN [Concomitant]
     Active Substance: AZITHROMYCIN
  8. BUSULFAN [Concomitant]
     Active Substance: BUSULFAN
  9. CALCIUM\VITAMIN D [Concomitant]
     Active Substance: CALCIUM\VITAMIN D
  10. CARDENE [Concomitant]
     Active Substance: NICARDIPINE HYDROCHLORIDE
  11. CEFTAZIDIME [Concomitant]
     Active Substance: CEFTAZIDIME
  12. CETIRIZINE [Concomitant]
     Active Substance: CETIRIZINE HYDROCHLORIDE
  13. DESMOPRESSIN [Concomitant]
     Active Substance: DESMOPRESSIN
  14. DEXAMETHASONE [Concomitant]
     Active Substance: DEXAMETHASONE
     Route: 014
  15. DIMENHYDRINATE [Concomitant]
     Active Substance: DIMENHYDRINATE
     Route: 042
  16. DEXMEDETOMIDINE [Concomitant]
     Active Substance: DEXMEDETOMIDINE
  17. DIPHENHYDRAMINE [Concomitant]
     Active Substance: DIPHENHYDRAMINE
  18. EPINEPHRINE [Concomitant]
     Active Substance: EPINEPHRINE
     Dosage: SOLUTION
     Route: 030
  19. FAMOTIDINE [Concomitant]
     Active Substance: FAMOTIDINE
  20. FILGRASTIM [Concomitant]
     Active Substance: FILGRASTIM
  21. FLUCONAZOLE [Concomitant]
     Active Substance: FLUCONAZOLE
  22. FOLIC ACID [Concomitant]
     Active Substance: FOLIC ACID
  23. GRANISETRON [Concomitant]
     Active Substance: GRANISETRON
  24. HYDROCORTISONE [Concomitant]
     Active Substance: HYDROCORTISONE
     Route: 030
  25. HYDROMORPHONE [Concomitant]
     Active Substance: HYDROMORPHONE
  26. INFLIXIMAB [Concomitant]
     Active Substance: INFLIXIMAB
  27. KETAMINE [Concomitant]
     Active Substance: KETAMINE
  28. LANSOPRAZOLE [Concomitant]
     Active Substance: LANSOPRAZOLE
  29. LEUPROLIDE ACETATE [Concomitant]
     Active Substance: LEUPROLIDE ACETATE
  30. LEVETIRACETAM [Concomitant]
     Active Substance: LEVETIRACETAM
  31. LEVOFLOXACIN [Concomitant]
     Active Substance: LEVOFLOXACIN
  32. LOPERAMIDE [Concomitant]
     Active Substance: LOPERAMIDE
  33. LORAZEPAM [Concomitant]
     Active Substance: LORAZEPAM
  34. MELATONIN [Concomitant]
     Active Substance: MELATONIN
  35. MELPHALAN [Concomitant]
     Active Substance: MELPHALAN
  36. MEROPENEM [Concomitant]
     Active Substance: MEROPENEM
     Route: 042
  37. METOCLOPRAMIDE [Concomitant]
     Active Substance: METOCLOPRAMIDE
  38. MORPHINE [Concomitant]
     Active Substance: MORPHINE
  39. MYCAMINE [Concomitant]
     Active Substance: MICAFUNGIN SODIUM
     Route: 042
  40. NORETHINDRONE [Concomitant]
     Active Substance: NORETHINDRONE
  41. OLANZAPINE [Concomitant]
     Active Substance: OLANZAPINE
  42. ONDANSETRON [Concomitant]
     Active Substance: ONDANSETRON
  43. PANTOPRAZOLE [Concomitant]
     Active Substance: PANTOPRAZOLE
     Route: 042
  44. PHYTONADIONE [Concomitant]
     Active Substance: PHYTONADIONE
  45. PIPERACILLIN AND TAZOBACTAM [Concomitant]
     Active Substance: PIPERACILLIN SODIUM\TAZOBACTAM SODIUM
  46. POTASSIUM [Concomitant]
     Active Substance: POTASSIUM
     Route: 042
  47. PREDNISONE [Concomitant]
     Active Substance: PREDNISONE
  48. PREGABALIN [Concomitant]
     Active Substance: PREGABALIN
  49. PROPOFOL [Concomitant]
     Active Substance: PROPOFOL
  50. RANITIDINE [Concomitant]
     Active Substance: RANITIDINE
  51. RITUXAN [Concomitant]
     Active Substance: RITUXIMAB
  52. ROCURONIUM [Concomitant]
     Active Substance: ROCURONIUM BROMIDE
  53. SEVELAMER [Concomitant]
     Active Substance: SEVELAMER
  54. TRANEXAMIC ACID [Concomitant]
     Active Substance: TRANEXAMIC ACID
  55. SULFAMETHOXAZOLE\TRIMETHOPRIM [Concomitant]
     Active Substance: SULFAMETHOXAZOLE\TRIMETHOPRIM
  56. URSODIOL [Concomitant]
     Active Substance: URSODIOL
  57. VORICONAZOLE [Concomitant]
     Active Substance: VORICONAZOLE
  58. VALACYCLOVIR HYDROCHLORIDE [Concomitant]
     Active Substance: VALACYCLOVIR HYDROCHLORIDE

REACTIONS (12)
  - Haemolysis [Fatal]
  - Blood lactate dehydrogenase increased [Fatal]
  - Hypertension [Fatal]
  - Intensive care [Fatal]
  - Lung disorder [Fatal]
  - Renal failure [Fatal]
  - Respiratory failure [Fatal]
  - Retinopathy [Fatal]
  - Thrombocytopenia [Fatal]
  - Thrombotic microangiopathy [Fatal]
  - Transfusion [Fatal]
  - Off label use [Unknown]
